FAERS Safety Report 9251363 (Version 2)
Quarter: 2013Q2

REPORT INFORMATION
  Report Type: Spontaneous
  Country: US (occurrence: US)
  Receive Date: 20130424
  Receipt Date: 20130503
  Transmission Date: 20140414
  Serious: Yes (Hospitalization, Other)
  Sender: FDA-Public Use
  Company Number: US-PFIZER INC-2013125303

PATIENT
  Age: 41 Year
  Sex: Male
  Weight: 53.97 kg

DRUGS (3)
  1. NEURONTIN [Suspect]
     Indication: MUSCULOSKELETAL PAIN
     Dosage: 600 MG, 3X/DAY
     Dates: start: 20121210
  2. FLEXERIL [Concomitant]
     Indication: PAIN
     Dosage: 2 DF, 1X/DAY
  3. PERCOCET [Concomitant]
     Indication: PAIN
     Dosage: UNK,3X/DAY

REACTIONS (4)
  - Tendon rupture [Recovering/Resolving]
  - Rotator cuff syndrome [Recovering/Resolving]
  - Musculoskeletal discomfort [Recovering/Resolving]
  - Impaired work ability [Unknown]
